FAERS Safety Report 10038696 (Version 1)
Quarter: 2014Q1

REPORT INFORMATION
  Report Type: Spontaneous
  Country: US (occurrence: None)
  Receive Date: 20140306
  Receipt Date: 20140306
  Transmission Date: 20141002
  Serious: Yes (Other)
  Sender: FDA-Public Use
  Company Number: 163-21880-13011756

PATIENT
  Age: 60 Year
  Sex: Male

DRUGS (7)
  1. REVLIMID (LENALIDOMIDE) (25 MILLIGRAM, CAPSULES) [Suspect]
     Indication: PLASMA CELL MYELOMA
     Dosage: 25MG, 1 IN 1D PO
     Route: 048
     Dates: start: 201209
  2. BABY ASPIRIN (ACETYLSALICYCLIC ACID) [Concomitant]
  3. FISH OIL (FISH OIL) [Concomitant]
  4. GLUCOPHAGE (METFORMIN HYDROCHLORIDE) [Concomitant]
  5. IMMUNE TRIO )OTHER NON-THERAPEUTIC AUXILIARY [Concomitant]
  6. LIPITOR (ATORVASTATIN) (TABLETS) [Concomitant]
  7. MULTIVITAMINS (MULTIVITAMINS) (TABLETS) [Concomitant]

REACTIONS (1)
  - Blood glucose increased [None]
